FAERS Safety Report 9825680 (Version 1)
Quarter: 2013Q4

REPORT INFORMATION
  Report Type: Spontaneous
  Country: US (occurrence: None)
  Receive Date: 20131101
  Receipt Date: 20131101
  Transmission Date: 20140711
  Serious: Yes (Other)
  Sender: FDA-Public Use
  Company Number: ALL1-2013-06045

PATIENT
  Age: 12 Year
  Sex: Female

DRUGS (1)
  1. INTUNIV [Suspect]
     Indication: AUTISM
     Route: 048

REACTIONS (4)
  - Hallucination [None]
  - Affect lability [None]
  - Fatigue [None]
  - Off label use [None]
